FAERS Safety Report 4739845-7 (Version None)
Quarter: 2005Q3

REPORT INFORMATION
  Report Type: 
  Country: None (occurrence: None)
  Receive Date: 20050810
  Receipt Date: 20050519
  Transmission Date: 20060218
  Serious: No
  Sender: FDA-Public Use
  Company Number: US-GLAXOSMITHKLINE-A0559336A

PATIENT
  Age: 53 Year
  Sex: Female

DRUGS (3)
  1. PAXIL [Suspect]
     Route: 048
     Dates: start: 20050501
  2. ESTROGEN [Concomitant]
  3. LIPITOR [Concomitant]

REACTIONS (4)
  - ANXIETY [None]
  - DISCOMFORT [None]
  - HOT FLUSH [None]
  - MOOD SWINGS [None]
